FAERS Safety Report 10062530 (Version 1)
Quarter: 2014Q1

REPORT INFORMATION
  Report Type: Spontaneous
  Country: US (occurrence: None)
  Receive Date: 20140313
  Receipt Date: 20140313
  Transmission Date: 20141002
  Serious: Yes (Disabling)
  Sender: FDA-Public Use
  Company Number: 1869894

PATIENT
  Sex: Female

DRUGS (2)
  1. METOCLOPRAMIDE INJECTION, USP, 5MG/ML FLIPTOP VIAL (METOCLOPRAMIDE) [Suspect]
     Indication: GASTROINTESTINAL DISORDER
     Dosage: 2-3 TIMES A DAY, INJECTION
  2. METOCLOPRAMIDE [Suspect]
     Indication: GASTROINTESTINAL DISORDER
     Dosage: 2-3 TIMES A DAY, INJECTION

REACTIONS (3)
  - Drug prescribing error [None]
  - Toxicity to various agents [None]
  - Akathisia [None]
